FAERS Safety Report 16776676 (Version 2)
Quarter: 2019Q4

REPORT INFORMATION
  Report Type: Report from Study
  Country: JP (occurrence: JP)
  Receive Date: 20190905
  Receipt Date: 20191010
  Transmission Date: 20200122
  Serious: Yes (Other)
  Sender: FDA-Public Use
  Company Number: JP-SAKK-2019SA202134AA

PATIENT
  Age: 64 Year
  Sex: Male
  Weight: 62 kg

DRUGS (50)
  1. AFLIBERCEPT [Suspect]
     Active Substance: AFLIBERCEPT
     Indication: RECTAL CANCER
     Dosage: 4 MG/KG, Q3W
     Route: 041
     Dates: start: 20180803, end: 20180824
  2. AFLIBERCEPT [Suspect]
     Active Substance: AFLIBERCEPT
     Dosage: 4 MG/KG, 1X
     Route: 041
     Dates: start: 20181226, end: 20181226
  3. CALCIUM FOLINATE [Suspect]
     Active Substance: LEUCOVORIN CALCIUM
     Indication: RECTAL CANCER
     Dosage: 200 MG/M2, Q3W
     Route: 065
     Dates: start: 20180803, end: 20180824
  4. CALCIUM FOLINATE [Suspect]
     Active Substance: LEUCOVORIN CALCIUM
     Dosage: 200 MG/M2, 1X
     Route: 065
     Dates: start: 20181226, end: 20181226
  5. IRINOTECAN [Suspect]
     Active Substance: IRINOTECAN
     Dosage: 120 MG/M2, 1X
     Route: 065
     Dates: start: 20180928, end: 20180928
  6. FLUOROURACIL. [Suspect]
     Active Substance: FLUOROURACIL
     Dosage: 300 MG/M2, 1X
     Route: 040
     Dates: start: 20180928, end: 20180928
  7. AFLIBERCEPT [Suspect]
     Active Substance: AFLIBERCEPT
     Dosage: 4 MG/KG, 1X
     Route: 041
     Dates: start: 20190708, end: 20190708
  8. CALCIUM FOLINATE [Suspect]
     Active Substance: LEUCOVORIN CALCIUM
     Indication: COLON CANCER
     Dosage: 200 MG/M2, 1X
     Route: 065
     Dates: start: 20190510, end: 20190510
  9. CALCIUM FOLINATE [Suspect]
     Active Substance: LEUCOVORIN CALCIUM
     Dosage: 200 MG/M2, Q3W
     Route: 065
     Dates: start: 20190111, end: 20190201
  10. CALCIUM FOLINATE [Suspect]
     Active Substance: LEUCOVORIN CALCIUM
     Dosage: 200 MG/M2, Q3W
     Route: 065
     Dates: start: 20190218, end: 20190311
  11. IRINOTECAN [Suspect]
     Active Substance: IRINOTECAN
     Dosage: 120 MG/M2, QOW
     Route: 065
     Dates: start: 20181015, end: 20181210
  12. IRINOTECAN [Suspect]
     Active Substance: IRINOTECAN
     Dosage: 120 MG/M2, 1X
     Route: 065
     Dates: start: 20181226, end: 20181226
  13. IRINOTECAN [Suspect]
     Active Substance: IRINOTECAN
     Dosage: 120 MG/M2, Q3W
     Route: 065
     Dates: start: 20190218, end: 20190311
  14. FLUOROURACIL. [Suspect]
     Active Substance: FLUOROURACIL
     Dosage: 300 MG/M2, Q3W
     Route: 040
     Dates: start: 20190111, end: 20190201
  15. FLUOROURACIL. [Suspect]
     Active Substance: FLUOROURACIL
     Dosage: 2000 MG/M2, Q3W
     Route: 041
     Dates: start: 20190111, end: 20190201
  16. FLUOROURACIL. [Suspect]
     Active Substance: FLUOROURACIL
     Dosage: 2000 MG/M2, QOW
     Route: 041
     Dates: start: 20190325, end: 20190422
  17. FLUOROURACIL. [Suspect]
     Active Substance: FLUOROURACIL
     Indication: COLON CANCER
     Dosage: 300 MG/M2, 1X
     Route: 040
     Dates: start: 20190510, end: 20190510
  18. FLUOROURACIL. [Suspect]
     Active Substance: FLUOROURACIL
     Dosage: 2400 MG/M2, QOW
     Route: 041
     Dates: start: 20180803, end: 20180824
  19. FLUOROURACIL. [Suspect]
     Active Substance: FLUOROURACIL
     Dosage: 2000 MG/M2, 1X
     Route: 041
     Dates: start: 20181226, end: 20181226
  20. FLUOROURACIL. [Suspect]
     Active Substance: FLUOROURACIL
     Dosage: 300 MG/M2, Q3W
     Route: 040
     Dates: start: 20190218, end: 20190311
  21. AFLIBERCEPT [Suspect]
     Active Substance: AFLIBERCEPT
     Indication: COLON CANCER
     Dosage: 4 MG/KG, 1X
     Route: 041
     Dates: start: 20190510, end: 20190510
  22. CALCIUM FOLINATE [Suspect]
     Active Substance: LEUCOVORIN CALCIUM
     Dosage: 200 MG/M2, QOW
     Route: 065
     Dates: start: 20181015, end: 20181210
  23. CALCIUM FOLINATE [Suspect]
     Active Substance: LEUCOVORIN CALCIUM
     Dosage: 200 MG/M2, 1X
     Route: 065
     Dates: start: 20190610, end: 20190610
  24. IRINOTECAN [Suspect]
     Active Substance: IRINOTECAN
     Dosage: 120 MG/M2, 1X
     Route: 065
     Dates: start: 20190708, end: 20190708
  25. FLUOROURACIL. [Suspect]
     Active Substance: FLUOROURACIL
     Indication: RECTAL CANCER
     Dosage: 2000 MG/M2, 1X
     Route: 041
     Dates: start: 20190510, end: 20190510
  26. FLUOROURACIL. [Suspect]
     Active Substance: FLUOROURACIL
     Dosage: 400 MG/M2, QOW
     Route: 040
     Dates: start: 20180803, end: 20180824
  27. FLUOROURACIL. [Suspect]
     Active Substance: FLUOROURACIL
     Dosage: 2000 MG/M2, 1X
     Route: 041
     Dates: start: 20180928, end: 20180928
  28. FLUOROURACIL. [Suspect]
     Active Substance: FLUOROURACIL
     Dosage: 300 MG/M2, 1X
     Route: 040
     Dates: start: 20190708, end: 20190708
  29. AFLIBERCEPT [Suspect]
     Active Substance: AFLIBERCEPT
     Dosage: 4 MG/KG, Q3W
     Route: 041
     Dates: start: 20190111, end: 20190201
  30. AFLIBERCEPT [Suspect]
     Active Substance: AFLIBERCEPT
     Dosage: 4 MG/KG, QOW
     Route: 041
     Dates: start: 20190325, end: 20190422
  31. IRINOTECAN [Suspect]
     Active Substance: IRINOTECAN
     Indication: RECTAL CANCER
     Dosage: 150 MG/M2, Q3W
     Route: 065
     Dates: start: 20180803, end: 20180824
  32. FLUOROURACIL. [Suspect]
     Active Substance: FLUOROURACIL
     Dosage: 300 MG/M2, QOW
     Route: 040
     Dates: start: 20181015, end: 20181210
  33. FLUOROURACIL. [Suspect]
     Active Substance: FLUOROURACIL
     Dosage: 2000 MG/M2, 1X
     Route: 041
     Dates: start: 20190610, end: 20190610
  34. FLUOROURACIL. [Suspect]
     Active Substance: FLUOROURACIL
     Dosage: 2000 MG/M2, 1X
     Route: 041
     Dates: start: 20190708, end: 20190708
  35. AFLIBERCEPT [Suspect]
     Active Substance: AFLIBERCEPT
     Dosage: 4 MG/KG, QOW
     Route: 041
     Dates: start: 20181015, end: 20181210
  36. AFLIBERCEPT [Suspect]
     Active Substance: AFLIBERCEPT
     Dosage: 4 MG/KG, 1X
     Route: 041
     Dates: start: 20190610, end: 20190610
  37. CALCIUM FOLINATE [Suspect]
     Active Substance: LEUCOVORIN CALCIUM
     Dosage: 200 MG/M2, QOW
     Route: 065
     Dates: start: 20190325, end: 20190422
  38. IRINOTECAN [Suspect]
     Active Substance: IRINOTECAN
     Dosage: 120 MG/M2, QOW
     Route: 065
     Dates: start: 20190325, end: 20190422
  39. FLUOROURACIL. [Suspect]
     Active Substance: FLUOROURACIL
     Dosage: 2000 MG/M2, Q3W
     Route: 041
     Dates: start: 20190218, end: 20190311
  40. AFLIBERCEPT [Suspect]
     Active Substance: AFLIBERCEPT
     Dosage: 4 MG/KG, 1X
     Route: 041
     Dates: start: 20180928, end: 20180928
  41. IRINOTECAN [Suspect]
     Active Substance: IRINOTECAN
     Indication: COLON CANCER
     Dosage: 120 MG/M2, 1X
     Route: 065
     Dates: start: 20190510, end: 20190510
  42. IRINOTECAN [Suspect]
     Active Substance: IRINOTECAN
     Dosage: 120 MG/M2, Q3W
     Route: 065
     Dates: start: 20190111, end: 20190201
  43. IRINOTECAN [Suspect]
     Active Substance: IRINOTECAN
     Dosage: 120 MG/M2, 1X
     Route: 065
     Dates: start: 20190610, end: 20190610
  44. FLUOROURACIL. [Suspect]
     Active Substance: FLUOROURACIL
     Dosage: 300 MG/M2, 1X
     Route: 040
     Dates: start: 20190610, end: 20190610
  45. AFLIBERCEPT [Suspect]
     Active Substance: AFLIBERCEPT
     Dosage: 4 MG/KG, Q3W
     Route: 041
     Dates: start: 20190218, end: 20190311
  46. CALCIUM FOLINATE [Suspect]
     Active Substance: LEUCOVORIN CALCIUM
     Dosage: 200 MG/M2, 1X
     Route: 065
     Dates: start: 20180928, end: 20180928
  47. CALCIUM FOLINATE [Suspect]
     Active Substance: LEUCOVORIN CALCIUM
     Dosage: 200 MG/M2, 1X
     Route: 065
     Dates: start: 20190708, end: 20190708
  48. FLUOROURACIL. [Suspect]
     Active Substance: FLUOROURACIL
     Dosage: 2000 MG/M2, QOW
     Route: 041
     Dates: start: 20181015, end: 20181210
  49. FLUOROURACIL. [Suspect]
     Active Substance: FLUOROURACIL
     Dosage: 300 MG/M2, 1X
     Route: 040
     Dates: start: 20181226, end: 20181226
  50. FLUOROURACIL. [Suspect]
     Active Substance: FLUOROURACIL
     Dosage: 300 MG/M2, QOW
     Route: 040
     Dates: start: 20190325, end: 20190422

REACTIONS (4)
  - Proteinuria [Recovering/Resolving]
  - Renal impairment [Recovered/Resolved]
  - Dehydration [Recovered/Resolved]
  - Decreased appetite [Recovered/Resolved]

NARRATIVE: CASE EVENT DATE: 20190510
